FAERS Safety Report 6679576-X (Version None)
Quarter: 2010Q2

REPORT INFORMATION
  Report Type: 
  Country: None (occurrence: None)
  Receive Date: 20100413
  Receipt Date: 20100401
  Transmission Date: 20101027
  Serious: Yes (Other)
  Sender: FDA-Public Use
  Company Number: GB-CELGENEUS-167-20785-10040290

PATIENT

DRUGS (3)
  1. THALIDOMIDE [Suspect]
     Route: 048
  2. CYCLOPHOSPHAMIDE [Concomitant]
     Route: 065
  3. DEXAMETHASONE [Concomitant]
     Route: 065

REACTIONS (4)
  - NEUROPATHY PERIPHERAL [None]
  - NO THERAPEUTIC RESPONSE [None]
  - SOMNOLENCE [None]
  - VENTRICULAR EXTRASYSTOLES [None]
